FAERS Safety Report 5883211-8 (Version None)
Quarter: 2008Q3

REPORT INFORMATION
  Report Type: 
  Country: None (occurrence: None)
  Receive Date: 20080915
  Receipt Date: 20080904
  Transmission Date: 20090109
  Serious: Yes (Other)
  Sender: FDA-Public Use
  Company Number: US-RANBAXY-2008US-16378

PATIENT

DRUGS (2)
  1. ISOTRETINOIN [Suspect]
     Indication: DRUG USE FOR UNKNOWN INDICATION
     Dosage: 40 MG, QD/BID ALTERNATING
     Route: 048
     Dates: start: 20080629, end: 20080629
  2. ISOTRETINOIN [Suspect]
     Dosage: 40 MG, QD/BID ALTERNATING
     Dates: start: 20080616

REACTIONS (1)
  - PREGNANCY [None]
